FAERS Safety Report 10206402 (Version 1)
Quarter: 2014Q2

REPORT INFORMATION
  Report Type: Spontaneous
  Country: US (occurrence: None)
  Receive Date: 20140527
  Receipt Date: 20140527
  Transmission Date: 20141212
  Serious: No
  Sender: FDA-Public Use
  Company Number: None

PATIENT
  Age: 73 Year
  Sex: Male

DRUGS (1)
  1. SPRYCEL 100 MG BRISTOL MYERS [Suspect]
     Indication: PLASMA CELL MYELOMA
     Route: 048
     Dates: start: 201404

REACTIONS (7)
  - Anaemia [None]
  - Disorientation [None]
  - Dizziness [None]
  - Photosensitivity reaction [None]
  - Decreased appetite [None]
  - Constipation [None]
  - Asthenia [None]
